FAERS Safety Report 20102592 (Version 1)
Quarter: 2021Q4

REPORT INFORMATION
  Report Type: Spontaneous
  Country: US (occurrence: US)
  Receive Date: 20211123
  Receipt Date: 20211123
  Transmission Date: 20220303
  Serious: Yes (Other)
  Sender: FDA-Public Use
  Company Number: US-JNJFOC-20211130274

PATIENT
  Age: 53 Year
  Sex: Male

DRUGS (1)
  1. EVICEL [Suspect]
     Active Substance: FIBRINOGEN HUMAN\THROMBIN HUMAN
     Indication: Tissue sealing
     Route: 065

REACTIONS (3)
  - Seroma [Unknown]
  - Off label use [Unknown]
  - Product use in unapproved indication [Unknown]
